FAERS Safety Report 8075947-8 (Version None)
Quarter: 2012Q1

REPORT INFORMATION
  Report Type: 
  Country: None (occurrence: None)
  Receive Date: 20120127
  Receipt Date: 20120123
  Transmission Date: 20120608
  Serious: Yes (Death, Life-Threatening, Hospitalization)
  Sender: FDA-Public Use
  Company Number: FR-VERTEX PHARMACEUTICALS INC.-000000000000000105

PATIENT
  Age: 65 Year
  Sex: Male

DRUGS (5)
  1. INTERFERON [Concomitant]
  2. BETA BLOCKER AGENT [Concomitant]
  3. RIBAVIRIN [Concomitant]
     Indication: HEPATITIS C
     Dates: start: 20070101
  4. EPOETIN NOS [Concomitant]
  5. INCIVO (TELAPREVIR) [Suspect]
     Indication: HEPATITIS C
     Dosage: DOSAGE FORM: TABLET
     Dates: start: 20111028, end: 20120107

REACTIONS (3)
  - PULMONARY FIBROSIS [None]
  - GENERAL PHYSICAL HEALTH DETERIORATION [None]
  - DEATH [None]
